FAERS Safety Report 18078179 (Version 2)
Quarter: 2022Q4

REPORT INFORMATION
  Report Type: Spontaneous
  Country: UG (occurrence: UG)
  Receive Date: 20200728
  Receipt Date: 20221018
  Transmission Date: 20230113
  Serious: Yes (Other)
  Sender: FDA-Public Use
  Company Number: UG-CIPLA LTD.-2020UG04969

PATIENT
  Sex: Male

DRUGS (4)
  1. TENOFOVIR [Suspect]
     Active Substance: TENOFOVIR
     Indication: HIV infection WHO clinical stage I
     Dosage: UNK
     Route: 065
  2. EFAVIRENZ [Suspect]
     Active Substance: EFAVIRENZ
     Indication: HIV infection WHO clinical stage I
     Dosage: UNK
     Route: 065
  3. COTRIMOXAZOLE [Concomitant]
     Active Substance: SULFAMETHOXAZOLE\TRIMETHOPRIM
     Indication: Product used for unknown indication
     Dosage: UNK
     Route: 065
  4. LAMIVUDINE [Suspect]
     Active Substance: LAMIVUDINE

REACTIONS (2)
  - Hyperkalaemia [Unknown]
  - Hypophosphataemia [Unknown]
